FAERS Safety Report 8825023 (Version 1)
Quarter: 2012Q4

REPORT INFORMATION
  Report Type: 
  Country: BR (occurrence: BR)
  Receive Date: 20121004
  Receipt Date: 20121004
  Transmission Date: 20130627
  Serious: Yes (Other)
  Sender: FDA-Public Use
  Company Number: BR-JNJFOC-20120911783

PATIENT
  Age: 3 Year
  Sex: Male

DRUGS (10)
  1. DOXORUBICIN [Suspect]
     Indication: NEUROBLASTOMA
     Route: 042
  2. DOXORUBICIN [Suspect]
     Indication: NEUROBLASTOMA
     Dosage: reduced by 25 %
     Route: 042
  3. CYCLOPHOSPHAMIDE [Suspect]
     Indication: NEUROBLASTOMA
     Dosage: reduced by 25 %
     Route: 065
  4. CYCLOPHOSPHAMIDE [Suspect]
     Indication: NEUROBLASTOMA
     Route: 065
  5. VINCRISTINE [Suspect]
     Indication: NEUROBLASTOMA
     Dosage: reduced by 25 %
     Route: 065
  6. VINCRISTINE [Suspect]
     Indication: NEUROBLASTOMA
     Route: 065
  7. UNSPECIFIED INGREDIENT [Suspect]
     Indication: NEUROBLASTOMA
     Route: 065
  8. UNSPECIFIED INGREDIENT [Suspect]
     Indication: NEUROBLASTOMA
     Dosage: reduced by 25 %
     Route: 065
  9. TENIPOSIDE [Suspect]
     Indication: NEUROBLASTOMA
     Dosage: reduced by 25 %
     Route: 065
  10. TENIPOSIDE [Suspect]
     Indication: NEUROBLASTOMA
     Route: 065

REACTIONS (2)
  - Nephropathy toxic [Unknown]
  - Off label use [Unknown]
